FAERS Safety Report 8920870 (Version 7)
Quarter: 2013Q4

REPORT INFORMATION
  Report Type: Spontaneous
  Country: US (occurrence: US)
  Receive Date: 20121121
  Receipt Date: 20131105
  Transmission Date: 20140711
  Serious: Yes (Hospitalization, Disabling, Other)
  Sender: FDA-Public Use
  Company Number: US-MERCK-1211USA008153

PATIENT
  Sex: Female
  Weight: 48.53 kg

DRUGS (7)
  1. FOSAMAX [Suspect]
     Indication: RHEUMATOID ARTHRITIS
     Dosage: 70 MG, QW
     Route: 048
     Dates: start: 2000, end: 2008
  2. FOSAMAX [Suspect]
     Indication: OSTEOPENIA
     Dosage: UNK
     Route: 048
     Dates: start: 2008, end: 2009
  3. FOSAMAX [Suspect]
     Indication: OSTEOPOROSIS PROPHYLAXIS
  4. FOSAMAX PLUS D [Suspect]
     Indication: RHEUMATOID ARTHRITIS
     Dosage: 70 MG, UNK
     Route: 048
     Dates: start: 2000, end: 2008
  5. ALENDRONATE SODIUM [Suspect]
     Indication: RHEUMATOID ARTHRITIS
     Dosage: 70 MG, UNK
     Route: 048
     Dates: start: 2008, end: 2011
  6. METHOTREXATE [Concomitant]
     Indication: RHEUMATOID ARTHRITIS
     Dosage: 10-15MG QW
     Route: 048
     Dates: start: 2000, end: 2011
  7. ONE-A-DAY ESSENTIAL VITAMINS [Concomitant]
     Dosage: UNK
     Dates: start: 1960

REACTIONS (77)
  - Intramedullary rod insertion [Unknown]
  - Osteoporosis [Not Recovered/Not Resolved]
  - Multiple fractures [Not Recovered/Not Resolved]
  - Femur fracture [Not Recovered/Not Resolved]
  - Low turnover osteopathy [Not Recovered/Not Resolved]
  - Femur fracture [Unknown]
  - Fibula fracture [Unknown]
  - Tibia fracture [Unknown]
  - Internal fixation of fracture [Unknown]
  - Atrial fibrillation [Unknown]
  - Decreased appetite [Unknown]
  - Dehydration [Unknown]
  - Arthrodesis [Unknown]
  - Surgery [Unknown]
  - Surgery [Unknown]
  - Femur fracture [Unknown]
  - Humerus fracture [Unknown]
  - Pyrexia [Recovering/Resolving]
  - Pneumonia [Recovering/Resolving]
  - Joint arthroplasty [Unknown]
  - Femur fracture [Not Recovered/Not Resolved]
  - Fracture nonunion [Unknown]
  - Adverse event [Unknown]
  - Tooth disorder [Unknown]
  - Peptic ulcer [Unknown]
  - Vascular calcification [Unknown]
  - Foot deformity [Unknown]
  - Hyperkeratosis [Unknown]
  - Spinal compression fracture [Unknown]
  - Rib fracture [Recovering/Resolving]
  - Device failure [Unknown]
  - Spinal fracture [Unknown]
  - Lower limb fracture [Unknown]
  - Osteotomy [Unknown]
  - Wrist surgery [Unknown]
  - Joint effusion [Unknown]
  - Osteoarthritis [Unknown]
  - Underweight [Unknown]
  - Osteoarthritis [Unknown]
  - Night sweats [Unknown]
  - Hypertension [Unknown]
  - Spinal column stenosis [Not Recovered/Not Resolved]
  - Interstitial lung disease [Unknown]
  - Malnutrition [Unknown]
  - Hyponatraemia [Unknown]
  - Hypomagnesaemia [Unknown]
  - Immunosuppression [Unknown]
  - QRS axis abnormal [Unknown]
  - Left ventricular hypertrophy [Unknown]
  - Blood sodium decreased [Unknown]
  - Protein urine [Unknown]
  - Blood urine [Unknown]
  - Hypoxia [Unknown]
  - Idiopathic pulmonary fibrosis [Unknown]
  - Excoriation [Unknown]
  - Red blood cell sedimentation rate increased [Unknown]
  - Adverse drug reaction [Unknown]
  - Hiatus hernia [Unknown]
  - Swelling [Unknown]
  - Pleural effusion [Unknown]
  - Aortic calcification [Unknown]
  - Road traffic accident [Unknown]
  - Hypertension [Unknown]
  - Nodule [Recovering/Resolving]
  - Nausea [Unknown]
  - Metatarsalgia [Unknown]
  - Arthralgia [Not Recovered/Not Resolved]
  - Off label use [Unknown]
  - Pain in extremity [Unknown]
  - Dysphagia [Unknown]
  - Abdominal discomfort [Unknown]
  - Headache [Unknown]
  - Neck pain [Unknown]
  - Oedema peripheral [Unknown]
  - Musculoskeletal pain [Unknown]
  - Rash [Unknown]
  - Gastrooesophageal reflux disease [Unknown]
